FAERS Safety Report 17816240 (Version 1)
Quarter: 2020Q2

REPORT INFORMATION
  Report Type: Spontaneous
  Country: US (occurrence: US)
  Receive Date: 20200522
  Receipt Date: 20200522
  Transmission Date: 20200714
  Serious: Yes (Life-Threatening, Disabling)
  Sender: FDA-Public Use
  Company Number: None

PATIENT
  Age: 51 Year
  Sex: Male
  Weight: 81 kg

DRUGS (7)
  1. SINUS HEADACHE MEDICINE [Concomitant]
  2. SEVERE ALLERGY MEDICINE [Concomitant]
  3. ANTACID TABLET [Concomitant]
  4. FISH OIL [Concomitant]
     Active Substance: FISH OIL
  5. METHOCARBAMOL 750 TABLETS [Suspect]
     Active Substance: METHOCARBAMOL
     Indication: POST-TRAUMATIC NECK SYNDROME
     Route: 048
     Dates: start: 20180719, end: 20180721
  6. VITAMIN D3 [Concomitant]
     Active Substance: CHOLECALCIFEROL
  7. ROBAXIN/METHOCARBAMOL [Concomitant]

REACTIONS (4)
  - Chest pain [None]
  - Angina pectoris [None]
  - Heart valve incompetence [None]
  - Feeling abnormal [None]

NARRATIVE: CASE EVENT DATE: 20180721
